FAERS Safety Report 5206723-9 (Version None)
Quarter: 2007Q1

REPORT INFORMATION
  Report Type: 
  Country: None (occurrence: None)
  Receive Date: 20070109
  Receipt Date: 20061225
  Transmission Date: 20070707
  Serious: Yes (Other)
  Sender: FDA-Public Use
  Company Number: 100#01#2006-02832

PATIENT
  Age: 25 Year
  Sex: Female

DRUGS (1)
  1. SUMAMED (AZITHROMYCIN) (AZITHROMYCIN) [Suspect]
     Indication: CHLAMYDIAL INFECTION
     Dosage: 1 GM (250 MG) ORAL
     Route: 048
     Dates: start: 20060815, end: 20060815

REACTIONS (2)
  - ERYTHEMA NODOSUM [None]
  - PRURITUS [None]
